FAERS Safety Report 10332109 (Version 1)
Quarter: 2014Q3

REPORT INFORMATION
  Report Type: Spontaneous
  Country: US (occurrence: US)
  Receive Date: 20140722
  Receipt Date: 20140722
  Transmission Date: 20150326
  Serious: No
  Sender: FDA-Public Use
  Company Number: US-UNITED THERAPEUTICS-UNT-2014-000435

PATIENT
  Sex: Female

DRUGS (1)
  1. REMODULIN [Suspect]
     Active Substance: TREPROSTINIL

REACTIONS (6)
  - Nasal oedema [Unknown]
  - Lip swelling [Unknown]
  - Burning sensation [Unknown]
  - Accidental exposure to product [Unknown]
  - Exposure via direct contact [Unknown]
  - Erythema [Unknown]
